FAERS Safety Report 8268295-4 (Version None)
Quarter: 2012Q2

REPORT INFORMATION
  Report Type: 
  Country: None (occurrence: None)
  Receive Date: 20120409
  Receipt Date: 20120402
  Transmission Date: 20120825
  Serious: Yes (Hospitalization)
  Sender: FDA-Public Use
  Company Number: GXKR2012DE001359

PATIENT
  Age: 63 Year
  Sex: Female

DRUGS (2)
  1. CEFUROXIME [Suspect]
     Dosage: 250 MG, QD
     Route: 048
  2. CEFUROXIME [Suspect]
     Indication: CYSTITIS
     Dosage: 500 MG, QD
     Route: 048

REACTIONS (3)
  - GENERALISED ERYTHEMA [None]
  - FEELING HOT [None]
  - SKIN BURNING SENSATION [None]
